FAERS Safety Report 16883453 (Version 1)
Quarter: 2019Q4

REPORT INFORMATION
  Report Type: Spontaneous
  Country: US (occurrence: US)
  Receive Date: 20191004
  Receipt Date: 20191004
  Transmission Date: 20200122
  Serious: Yes (Other)
  Sender: FDA-Public Use
  Company Number: US-009507513-1909USA014671

PATIENT
  Age: 32 Year
  Sex: Female
  Weight: 77.82 kg

DRUGS (1)
  1. NEXPLANON [Suspect]
     Active Substance: ETONOGESTREL
     Indication: CONTRACEPTION
     Dosage: 68 MILLIGRAM (1 ROD)
     Route: 059
     Dates: start: 20190906

REACTIONS (3)
  - Device dislocation [Not Recovered/Not Resolved]
  - Implant site bruising [Recovered/Resolved]
  - Implant site pain [Not Recovered/Not Resolved]

NARRATIVE: CASE EVENT DATE: 201909
